FAERS Safety Report 5861929-0 (Version None)
Quarter: 2008Q3

REPORT INFORMATION
  Report Type: 
  Country: None (occurrence: None)
  Receive Date: 20080827
  Receipt Date: 20080722
  Transmission Date: 20090109
  Serious: No
  Sender: FDA-Public Use
  Company Number: US-ABBOTT-08P-163-0465118-00

PATIENT
  Sex: Female
  Weight: 62.652 kg

DRUGS (7)
  1. NIASPAN [Suspect]
     Indication: BLOOD CHOLESTEROL
     Route: 048
     Dates: start: 20080708, end: 20080715
  2. NIASPAN [Suspect]
     Indication: HIGH DENSITY LIPOPROTEIN INCREASED
  3. FEXOFENADINE [Interacting]
     Indication: HYPERSENSITIVITY
     Route: 048
     Dates: start: 20080708, end: 20080715
  4. ATENOLOL [Concomitant]
     Indication: CARDIAC DISORDER
     Dosage: 1/2 TAB OF 50 MG DAILY
     Route: 048
  5. ALPRAZOLAM [Concomitant]
     Indication: SENSATION OF PRESSURE
     Dosage: 10/40MG DAILY
     Route: 048
  6. ROSUVASTATIN [Concomitant]
     Indication: BLOOD CHOLESTEROL
     Route: 048
  7. SALMO SALAR OIL [Concomitant]
     Indication: BLOOD CHOLESTEROL
     Route: 048

REACTIONS (5)
  - BLOOD PRESSURE INCREASED [None]
  - DRUG INTERACTION [None]
  - FLUSHING [None]
  - HEADACHE [None]
  - MUSCLE SPASMS [None]
